FAERS Safety Report 21505150 (Version 3)
Quarter: 2022Q4

REPORT INFORMATION
  Report Type: Report from Study
  Country: GB (occurrence: GB)
  Receive Date: 20221026
  Receipt Date: 20221122
  Transmission Date: 20230113
  Serious: Yes (Other)
  Sender: FDA-Public Use
  Company Number: GB-ABBVIE-22K-167-4527675-00

PATIENT
  Age: 76 Year
  Sex: Male

DRUGS (5)
  1. CARBIDOPA\LEVODOPA [Suspect]
     Active Substance: CARBIDOPA\LEVODOPA
     Indication: Parkinson^s disease
     Dosage: 20MGS/5MGS
     Route: 050
  2. CARBIDOPA\LEVODOPA [Suspect]
     Active Substance: CARBIDOPA\LEVODOPA
     Dosage: MD: 9.4, CR: 2.0, ED:4.2, 20MGS/5MGS
     Route: 050
  3. CARBIDOPA\LEVODOPA [Suspect]
     Active Substance: CARBIDOPA\LEVODOPA
     Dosage: MD:9.4,20MGS/5MGS
     Route: 050
  4. CARBIDOPA\LEVODOPA [Concomitant]
     Active Substance: CARBIDOPA\LEVODOPA
     Indication: Product used for unknown indication
     Dosage: 25/100MG, 7AM,9AM,12PM,3PM,6PM
  5. CARBIDOPA\LEVODOPA [Concomitant]
     Active Substance: CARBIDOPA\LEVODOPA
     Indication: Product used for unknown indication
     Dosage: 12.5/50MG 7AM,9AM,12PM,3PM,6PM
     Route: 050

REACTIONS (13)
  - Fall [Unknown]
  - Device kink [Recovered/Resolved]
  - Device issue [Not Recovered/Not Resolved]
  - Device alarm issue [Unknown]
  - Device alarm issue [Not Recovered/Not Resolved]
  - Device power source issue [Unknown]
  - Stoma site erythema [Not Recovered/Not Resolved]
  - Stoma site infection [Unknown]
  - Stoma site haemorrhage [Not Recovered/Not Resolved]
  - Stoma site reaction [Not Recovered/Not Resolved]
  - Drug ineffective [Unknown]
  - Device occlusion [Not Recovered/Not Resolved]
  - Dyskinesia [Unknown]

NARRATIVE: CASE EVENT DATE: 20220801
